FAERS Safety Report 9280419 (Version 2)
Quarter: 2013Q3

REPORT INFORMATION
  Report Type: Spontaneous
  Country: DE (occurrence: DE)
  Receive Date: 20130509
  Receipt Date: 20130710
  Transmission Date: 20140515
  Serious: Yes (Other)
  Sender: FDA-Public Use
  Company Number: GXKR2013DE001738

PATIENT
  Age: 48 Year
  Sex: Male
  Weight: 109 kg

DRUGS (1)
  1. OMNITROPE [Suspect]
     Indication: HYPOPITUITARISM
     Dosage: 0.4 MG, UNK
     Route: 065
     Dates: start: 201302, end: 20130305

REACTIONS (3)
  - Appendicitis [Recovered/Resolved]
  - Peritonitis bacterial [Recovered/Resolved]
  - Gastroenteritis Escherichia coli [Recovered/Resolved]
